FAERS Safety Report 8312340-4 (Version None)
Quarter: 2012Q2

REPORT INFORMATION
  Report Type: 
  Country: None (occurrence: None)
  Receive Date: 20120425
  Receipt Date: 20120417
  Transmission Date: 20120825
  Serious: Yes (Hospitalization)
  Sender: FDA-Public Use
  Company Number: CA-B.I. PHARMACEUTICALS,INC./RIDGEFIELD-2012-CN-00587CN

PATIENT
  Sex: Male

DRUGS (1)
  1. MIRAPEX [Suspect]
     Indication: RESTLESS LEGS SYNDROME
     Dates: start: 20040101, end: 20120101

REACTIONS (28)
  - THINKING ABNORMAL [None]
  - BANKRUPTCY [None]
  - MENTAL DISORDER [None]
  - CHEST PAIN [None]
  - BLOOD PRESSURE DECREASED [None]
  - ARTHRALGIA [None]
  - LIBIDO DECREASED [None]
  - COMPULSIVE SHOPPING [None]
  - PARANOIA [None]
  - SLEEP DISORDER [None]
  - ATTENTION-SEEKING BEHAVIOUR [None]
  - PARTNER STRESS [None]
  - OBSESSIVE-COMPULSIVE PERSONALITY DISORDER [None]
  - CONSTIPATION [None]
  - HYPERHIDROSIS [None]
  - DIVORCED [None]
  - GAMBLING [None]
  - DRY MOUTH [None]
  - DYSPEPSIA [None]
  - SOMNOLENCE [None]
  - SELF ESTEEM DECREASED [None]
  - BALANCE DISORDER [None]
  - ABNORMAL BEHAVIOUR [None]
  - ECONOMIC PROBLEM [None]
  - SUDDEN ONSET OF SLEEP [None]
  - DIZZINESS [None]
  - SUICIDAL IDEATION [None]
  - AGGRESSION [None]
